FAERS Safety Report 7117468-2 (Version None)
Quarter: 2010Q4

REPORT INFORMATION
  Report Type: 
  Country: None (occurrence: None)
  Receive Date: 20101122
  Receipt Date: 20101115
  Transmission Date: 20110411
  Serious: Yes (Death)
  Sender: FDA-Public Use
  Company Number: US-PFIZER INC-2010151825

PATIENT
  Sex: Male

DRUGS (1)
  1. VFEND [Suspect]
     Indication: LYMPHOMA
     Dosage: 200 MG, 2X/DAY
     Route: 048
     Dates: start: 20101005

REACTIONS (1)
  - DEATH [None]
